FAERS Safety Report 24104733 (Version 1)
Quarter: 2024Q3

REPORT INFORMATION
  Report Type: Spontaneous
  Country: AU (occurrence: AU)
  Receive Date: 20240717
  Receipt Date: 20240717
  Transmission Date: 20241017
  Serious: Yes (Other)
  Sender: MYLAN
  Company Number: AU-MYLANLABS-2024M1064183

PATIENT
  Age: 17 Year
  Sex: Female

DRUGS (5)
  1. CLOZARIL [Suspect]
     Active Substance: CLOZAPINE
     Indication: Schizophrenia
     Dosage: 2 DOSAGE FORM, PM (TAKE 2 TABLETS AT NIGHT)
     Route: 048
     Dates: start: 20240524
  2. CLOZARIL [Suspect]
     Active Substance: CLOZAPINE
     Indication: Schizophrenia
     Dosage: 2 DOSAGE FORM, PM (TAKE 2 TABLETS AT NIGHT)
     Route: 048
     Dates: start: 20240524
  3. DIABEX [Concomitant]
     Active Substance: METFORMIN HYDROCHLORIDE
     Indication: Blood glucose abnormal
     Dosage: 1 DOSAGE FORM, PM (SWALLOW WHOLE 1 TABLET IN THE EVENING WITH FOOD)
     Route: 065
  4. Coloxyl [Concomitant]
     Indication: Constipation
     Dosage: 1 DOSAGE FORM, BID (TAKE 1 TABLET TWICE A DAY)
     Route: 065
  5. MACROVIC [Concomitant]
     Indication: Constipation
     Dosage: AS DIRECTED (MAXIMUM OF 2 SACHETS PER DAY)
     Route: 065

REACTIONS (12)
  - Postural orthostatic tachycardia syndrome [Unknown]
  - Tachycardia [Unknown]
  - Orthostatic hypotension [Unknown]
  - Dizziness [Unknown]
  - Balance disorder [Unknown]
  - C-reactive protein increased [Unknown]
  - Hypertension [Unknown]
  - Haemoglobin decreased [Unknown]
  - Mean cell haemoglobin decreased [Unknown]
  - Mean cell volume decreased [Unknown]
  - Alanine aminotransferase increased [Unknown]
  - Off label use [Unknown]

NARRATIVE: CASE EVENT DATE: 20240524
